FAERS Safety Report 8260279-5 (Version None)
Quarter: 2012Q2

REPORT INFORMATION
  Report Type: 
  Country: None (occurrence: None)
  Receive Date: 20120404
  Receipt Date: 20120326
  Transmission Date: 20120825
  Serious: Yes (Life-Threatening, Hospitalization)
  Sender: FDA-Public Use
  Company Number: DE-ROCHE-1034720

PATIENT
  Sex: Female
  Weight: 53 kg

DRUGS (6)
  1. AVASTIN [Suspect]
     Indication: COLORECTAL CANCER METASTATIC
     Dosage: LAST DOSE PRIOR TO SAE: 23 JAN 2012,LAST DOSE PRIOR TO SAE 05/03/2012
     Dates: start: 20120104, end: 20120323
  2. OXALIPLATIN [Suspect]
     Indication: COLORECTAL CANCER METASTATIC
     Dosage: LAST DOSE PRIOR TO SAE: 23 JAN 2012,LAST DOSE PRIOR TO SAE ON 05/03/2012
     Route: 042
     Dates: start: 20120104
  3. LEUCOVORIN CALCIUM [Suspect]
     Indication: COLORECTAL CANCER METASTATIC
     Dosage: LAST DOSE PRIOR TO SAE: 23 JAN 2012,LAST DOSE PRIOR TO SAE ON 05/03/2012
     Route: 042
     Dates: start: 20120104, end: 20120318
  4. FLUOROURACIL [Suspect]
     Indication: COLORECTAL CANCER METASTATIC
     Dosage: LAST DOSE PRIOR TO SAE: 23 JAN 2012, LAST DOSE PRIOR TO SAE ON 05/03/2012
     Route: 042
     Dates: start: 20120104, end: 20120318
  5. IRINOTECAN HYDROCHLORIDE [Suspect]
     Indication: COLORECTAL CANCER METASTATIC
     Dosage: LAST DOSE PRIOR TO SAE: 23 JAN 2012
     Route: 042
     Dates: start: 20120104, end: 20120127
  6. IRINOTECAN HYDROCHLORIDE [Suspect]
     Dosage: LAST DOSE PRIOR TO SAE 05/03/2012
     Dates: end: 20120318

REACTIONS (4)
  - GASTROENTERITIS NOROVIRUS [None]
  - CHOLECYSTITIS ACUTE [None]
  - EATING DISORDER [None]
  - NEUTROPENIA [None]
